FAERS Safety Report 19062688 (Version 1)
Quarter: 2021Q1

REPORT INFORMATION
  Report Type: Spontaneous
  Country: US (occurrence: US)
  Receive Date: 20210326
  Receipt Date: 20210326
  Transmission Date: 20210420
  Serious: Yes (Hospitalization)
  Sender: FDA-Public Use
  Company Number: None

PATIENT
  Sex: Female

DRUGS (5)
  1. CELEBREX [Suspect]
     Active Substance: CELECOXIB
  2. TRIAMCINOLONE OINTMENT STEROID CREAM [Suspect]
     Active Substance: TRIAMCINOLONE
  3. EPINEPHRINE. [Suspect]
     Active Substance: EPINEPHRINE
  4. BANOPHEN [Suspect]
     Active Substance: DIPHENHYDRAMINE HYDROCHLORIDE
  5. HUMIRA [Suspect]
     Active Substance: ADALIMUMAB
     Indication: PSORIASIS
     Dosage: ?          OTHER DOSE:1 PEN;?
     Route: 058
     Dates: start: 20210129

REACTIONS (4)
  - Dehydration [None]
  - Rash [None]
  - Hypoaesthesia [None]
  - Dry skin [None]
